FAERS Safety Report 11990388 (Version 2)
Quarter: 2016Q1

REPORT INFORMATION
  Report Type: Report from Study
  Country: CA (occurrence: CA)
  Receive Date: 20160202
  Receipt Date: 20160216
  Transmission Date: 20160526
  Serious: Yes (Hospitalization, Other)
  Sender: FDA-Public Use
  Company Number: PHHY2015CA077085

PATIENT
  Age: 63 Year
  Sex: Male

DRUGS (1)
  1. ZOMETA [Suspect]
     Active Substance: ZOLEDRONIC ACID
     Indication: BLADDER CANCER
     Dosage: 4 MG, EVERY 4 WEEKS
     Route: 042
     Dates: start: 20150622

REACTIONS (9)
  - Pyrexia [Recovered/Resolved]
  - Influenza like illness [Unknown]
  - Nausea [Unknown]
  - Chills [Unknown]
  - Inappropriate schedule of drug administration [Unknown]
  - Secretion discharge [Unknown]
  - Blood pressure increased [Unknown]
  - Otorrhoea [Unknown]
  - Confusional state [Unknown]

NARRATIVE: CASE EVENT DATE: 20150622
